FAERS Safety Report 4688037-9 (Version None)
Quarter: 2005Q2

REPORT INFORMATION
  Report Type: 
  Country: None (occurrence: None)
  Receive Date: 20050610
  Receipt Date: 20050315
  Transmission Date: 20051028
  Serious: Yes (Other)
  Sender: FDA-Public Use
  Company Number: BR-ROCHE-398749

PATIENT
  Age: 19 Year
  Sex: Female
  Weight: 58 kg

DRUGS (2)
  1. ROACUTAN [Suspect]
     Indication: ACNE
     Route: 048
     Dates: start: 20040217, end: 20040905
  2. ROACUTAN [Suspect]
     Route: 048
     Dates: start: 20050315

REACTIONS (3)
  - ANXIETY [None]
  - DEPRESSION [None]
  - EATING DISORDER [None]
